FAERS Safety Report 6793304-9 (Version None)
Quarter: 2010Q2

REPORT INFORMATION
  Report Type: 
  Country: None (occurrence: None)
  Receive Date: 20100624
  Receipt Date: 20100203
  Transmission Date: 20101027
  Serious: Yes (Death)
  Sender: FDA-Public Use
  Company Number: US-MYLANLABS-2009S1019550

PATIENT
  Age: 41 Year
  Sex: Male
  Weight: 87.54 kg

DRUGS (14)
  1. CLOZAPINE [Suspect]
     Indication: PSYCHOTIC DISORDER
     Route: 048
     Dates: start: 20090727, end: 20090826
  2. CLOZAPINE [Suspect]
     Indication: ANXIETY
     Route: 048
     Dates: start: 20090727, end: 20090826
  3. CLOZAPINE [Suspect]
     Route: 048
     Dates: start: 20090827
  4. CLOZAPINE [Suspect]
     Route: 048
     Dates: start: 20090827
  5. CLOZAPINE [Suspect]
     Route: 048
     Dates: start: 20091007
  6. CLOZAPINE [Suspect]
     Route: 048
     Dates: start: 20091007
  7. CLOZAPINE [Suspect]
     Route: 048
     Dates: start: 20091028
  8. CLOZAPINE [Suspect]
     Route: 048
     Dates: start: 20091028
  9. OXYCODONE HCL [Concomitant]
     Indication: PAIN
  10. PERCOCET [Concomitant]
     Indication: PAIN
  11. DICLOFENAC [Concomitant]
  12. BUSPAR [Concomitant]
  13. TRAZODONE HYDROCHLORIDE [Concomitant]
  14. HALDOL [Concomitant]

REACTIONS (2)
  - ACUTE RESPIRATORY DISTRESS SYNDROME [None]
  - CARDIAC ARREST [None]
